FAERS Safety Report 4383145-4 (Version None)
Quarter: 2004Q2

REPORT INFORMATION
  Report Type: 
  Country: None (occurrence: None)
  Receive Date: 20040618
  Receipt Date: 20040607
  Transmission Date: 20050107
  Serious: Yes (Life-Threatening, Hospitalization, Other)
  Sender: FDA-Public Use
  Company Number: US-JNJFOC-20040404183

PATIENT
  Age: 60 Year
  Sex: Female
  Weight: 83.0083 kg

DRUGS (10)
  1. REMICADE [Suspect]
     Indication: RHEUMATOID ARTHRITIS
     Dosage: 1 IN 8 WEEK, INTRAVENOUS
     Route: 042
     Dates: start: 20010312
  2. MTX (TABLETS) METHOTREXATE SODIUM [Concomitant]
  3. FOLIC ACID [Concomitant]
  4. ZESTRORETIC (PRINZIDE) [Concomitant]
  5. MULTIVITE (KAPSOVIT) [Concomitant]
  6. CALTRATE (CALCIUM CARBONATE) [Concomitant]
  7. VITAMIN E [Concomitant]
  8. CELEBREX [Concomitant]
  9. ASPIRIN [Concomitant]
  10. DICLOFENAC [Concomitant]

REACTIONS (3)
  - METASTASES TO LUNG [None]
  - METASTASES TO SPINE [None]
  - RENAL CELL CARCINOMA STAGE UNSPECIFIED [None]
